FAERS Safety Report 13468538 (Version 1)
Quarter: 2017Q2

REPORT INFORMATION
  Report Type: Spontaneous
  Country: DK (occurrence: DK)
  Receive Date: 20170421
  Receipt Date: 20170421
  Transmission Date: 20170830
  Serious: Yes (Hospitalization)
  Sender: FDA-Public Use
  Company Number: DK-GUERBET-DK-20170004

PATIENT
  Age: 55 Year
  Sex: Female

DRUGS (1)
  1. OPTIRAY [Suspect]
     Active Substance: IOVERSOL
     Indication: COMPUTERISED TOMOGRAM KIDNEY
     Route: 042
     Dates: start: 20160115, end: 20160115

REACTIONS (19)
  - Dry mouth [Unknown]
  - Paraesthesia oral [Unknown]
  - Eye disorder [Unknown]
  - Dysphonia [Unknown]
  - Pain in jaw [Unknown]
  - Swelling face [Unknown]
  - Throat tightness [Unknown]
  - Salivary hypersecretion [Unknown]
  - Hypoaesthesia [Unknown]
  - Oropharyngeal pain [Unknown]
  - Oral pain [Unknown]
  - Speech disorder [Unknown]
  - Anaphylactic reaction [Recovered/Resolved]
  - Dysphagia [Unknown]
  - Laryngeal oedema [Unknown]
  - Dysgeusia [Unknown]
  - Vision blurred [Unknown]
  - Malaise [Unknown]
  - Dizziness [Unknown]

NARRATIVE: CASE EVENT DATE: 2016
